FAERS Safety Report 12355729 (Version 2)
Quarter: 2018Q3

REPORT INFORMATION
  Report Type: Report from Study
  Country: PA (occurrence: PA)
  Receive Date: 20160511
  Receipt Date: 20180906
  Transmission Date: 20181010
  Serious: Yes (Other)
  Sender: FDA-Public Use
  Company Number: PHHY2016PA006877

PATIENT
  Age: 49 Year
  Sex: Female

DRUGS (2)
  1. TASIGNA [Suspect]
     Active Substance: NILOTINIB
     Indication: PRODUCT USED FOR UNKNOWN INDICATION
     Dosage: 400 MG, BID
     Route: 065
  2. METFORMIN [Concomitant]
     Active Substance: METFORMIN HYDROCHLORIDE
     Indication: DIABETES MELLITUS
     Dosage: 1 DF, QD
     Route: 065

REACTIONS (13)
  - Pain [Unknown]
  - Acne [Unknown]
  - Constipation [Unknown]
  - Renal pain [Unknown]
  - Stenosis [Unknown]
  - Feeling abnormal [Unknown]
  - Varicose vein [Unknown]
  - Limb mass [Unknown]
  - Pain in extremity [Unknown]
  - Uterine leiomyoma [Unknown]
  - Asthenia [Unknown]
  - Erythema [Unknown]
  - Metabolic disorder [Unknown]
